FAERS Safety Report 5072746-6 (Version None)
Quarter: 2006Q3

REPORT INFORMATION
  Report Type: 
  Country: None (occurrence: None)
  Receive Date: 20060807
  Receipt Date: 20060720
  Transmission Date: 20061208
  Serious: Yes (Death, Hospitalization)
  Sender: FDA-Public Use
  Company Number: PHHO2006US11747

PATIENT
  Age: 54 Year
  Sex: Female
  Weight: 46.27 kg

DRUGS (8)
  1. RAD001 VS MMF [Suspect]
     Indication: HEART TRANSPLANT
     Dosage: 1.5 MG, Q12H
     Route: 048
     Dates: start: 20060530
  2. RAD001 VS MMF [Suspect]
     Dosage: 1 MG, Q12H
     Route: 048
  3. RAD001 VS MMF [Suspect]
     Dosage: 1.5 MG, Q12H
     Route: 048
  4. RAD001 VS MMF [Suspect]
     Dosage: 1 MG, Q12H
     Route: 048
     Dates: end: 20060719
  5. NEORAL [Suspect]
     Indication: HEART TRANSPLANT
     Dosage: 200 MG, Q12H
     Route: 048
     Dates: start: 20060530
  6. NEORAL [Suspect]
     Dosage: 275 MG, Q12H
     Route: 048
  7. NEORAL [Suspect]
     Dosage: 100 MG, Q12H
     Route: 048
     Dates: end: 20060719
  8. PREDNISONE [Concomitant]
     Indication: HEART TRANSPLANT
     Dosage: 100 MG, QD
     Route: 048
     Dates: start: 20060530

REACTIONS (11)
  - ANAEMIA [None]
  - BLOOD CREATININE INCREASED [None]
  - BONE MARROW FAILURE [None]
  - HEART TRANSPLANT REJECTION [None]
  - HYPOTENSION [None]
  - IMMUNOSUPPRESSANT DRUG LEVEL INCREASED [None]
  - LEUKOPENIA [None]
  - PANCYTOPENIA [None]
  - PNEUMONIA [None]
  - RESPIRATORY FAILURE [None]
  - THROMBOCYTOPENIA [None]
